FAERS Safety Report 19892672 (Version 2)
Quarter: 2021Q4

REPORT INFORMATION
  Report Type: Report from Study
  Country: US (occurrence: US)
  Receive Date: 20210928
  Receipt Date: 20211110
  Transmission Date: 20220303
  Serious: Yes (Death, Other)
  Sender: FDA-Public Use
  Company Number: US-OTSUKA-2021_032711

PATIENT
  Age: 64 Year
  Sex: Male

DRUGS (1)
  1. CEDAZURIDINE\DECITABINE [Suspect]
     Active Substance: CEDAZURIDINE\DECITABINE
     Indication: Product used for unknown indication
     Dosage: (35 MG OF DECITABINE AND 100 MG OF CEDAZURIDINE)
     Route: 065

REACTIONS (2)
  - Death [Fatal]
  - Blast cell count increased [Unknown]

NARRATIVE: CASE EVENT DATE: 20211015
